FAERS Safety Report 12094548 (Version 1)
Quarter: 2016Q1

REPORT INFORMATION
  Report Type: Report from Study
  Country: CA (occurrence: CA)
  Receive Date: 20160219
  Receipt Date: 20160219
  Transmission Date: 20160526
  Serious: Yes (Other)
  Sender: FDA-Public Use
  Company Number: CA-JNJFOC-20160215988

PATIENT
  Age: 64 Year
  Sex: Male
  Weight: 108.1 kg

DRUGS (5)
  1. DILTIAZEM [Concomitant]
     Active Substance: DILTIAZEM
     Route: 065
  2. METHOTREXATE [Concomitant]
     Active Substance: METHOTREXATE
     Route: 065
  3. CODEINE [Concomitant]
     Active Substance: CODEINE
     Route: 065
  4. DIGOXIN. [Concomitant]
     Active Substance: DIGOXIN
     Route: 065
  5. REMICADE [Suspect]
     Active Substance: INFLIXIMAB
     Indication: CROHN^S DISEASE
     Route: 042
     Dates: start: 20141112

REACTIONS (2)
  - Bronchitis [Recovered/Resolved]
  - Precancerous cells present [Recovering/Resolving]

NARRATIVE: CASE EVENT DATE: 20160105
